FAERS Safety Report 6123822-8 (Version None)
Quarter: 2009Q1

REPORT INFORMATION
  Report Type: 
  Country: None (occurrence: None)
  Receive Date: 20090317
  Receipt Date: 20090317
  Transmission Date: 20090719
  Serious: Yes (Hospitalization)
  Sender: FDA-Public Use
  Company Number: None

PATIENT
  Sex: Male
  Weight: 72 kg

DRUGS (4)
  1. BEVACIZUMAB (RHUMAB VEGF) [Suspect]
     Dosage: 740 MG
  2. CAMPTOSAR [Suspect]
     Dosage: 700 MG
  3. LEUCOVORIN CALCIUM [Suspect]
  4. FLUOROURACIL [Suspect]
     Dosage: 6225 MG

REACTIONS (5)
  - ACUTE MYOCARDIAL INFARCTION [None]
  - CORONARY ARTERY DISEASE [None]
  - HYPERLIPIDAEMIA [None]
  - ISCHAEMIC CARDIOMYOPATHY [None]
  - RENAL FAILURE [None]
